FAERS Safety Report 23319088 (Version 3)
Quarter: 2023Q4

REPORT INFORMATION
  Report Type: Spontaneous
  Country: US (occurrence: US)
  Receive Date: 20231220
  Receipt Date: 20231222
  Transmission Date: 20240109
  Serious: No
  Sender: FDA-Public Use
  Company Number: US-OPELLA-2023OHG017825

PATIENT
  Sex: Male

DRUGS (1)
  1. ICY HOT WITH LIDOCAINE NO-MESS [Suspect]
     Active Substance: LIDOCAINE\MENTHOL
     Indication: Product used for unknown indication
     Dosage: DOSAGE STRENGTH:2,96 G; 0,74 G/74 ML
     Dates: start: 202311

REACTIONS (2)
  - No adverse event [Unknown]
  - Drug ineffective [Unknown]

NARRATIVE: CASE EVENT DATE: 20231101
